FAERS Safety Report 8599737-2 (Version None)
Quarter: 2012Q3

REPORT INFORMATION
  Report Type: 
  Country: None (occurrence: None)
  Receive Date: 20120816
  Receipt Date: 20120814
  Transmission Date: 20120928
  Serious: No
  Sender: FDA-Public Use
  Company Number: US-PFIZER INC-2012198979

PATIENT
  Age: 65 Year
  Sex: Female
  Weight: 99.77 kg

DRUGS (2)
  1. LIPITOR [Suspect]
     Dosage: UNK
  2. VENLAFAXINE [Concomitant]
     Indication: DEPRESSION
     Dosage: UNK

REACTIONS (1)
  - DRUG HYPERSENSITIVITY [None]
